FAERS Safety Report 8803775 (Version 2)
Quarter: 2012Q4

REPORT INFORMATION
  Report Type: 
  Country: FI (occurrence: FI)
  Receive Date: 20120923
  Receipt Date: 20121004
  Transmission Date: 20130627
  Serious: Yes (Hospitalization)
  Sender: FDA-Public Use
  Company Number: FI-AMGEN-FINSP2012059533

PATIENT
  Sex: Male

DRUGS (5)
  1. NEULASTA [Suspect]
     Indication: CHEMOTHERAPY
     Dosage: 6 mg, UNK
     Dates: start: 20120912
  2. NEULASTA [Suspect]
     Indication: LUNG NEOPLASM MALIGNANT
  3. CARBOPLATIN [Suspect]
     Indication: LUNG NEOPLASM MALIGNANT
  4. ETOPOSIDE [Suspect]
     Indication: LUNG NEOPLASM MALIGNANT
  5. COZAAR [Concomitant]
     Indication: HYPERTENSION

REACTIONS (1)
  - Neutropenic infection [Recovering/Resolving]
